FAERS Safety Report 17095047 (Version 2)
Quarter: 2019Q4

REPORT INFORMATION
  Report Type: Spontaneous
  Country: US (occurrence: US)
  Receive Date: 20191130
  Receipt Date: 20191210
  Transmission Date: 20200122
  Serious: Yes (Other)
  Sender: FDA-Public Use
  Company Number: US-MICRO LABS LIMITED-ML2019-03419

PATIENT
  Sex: Female
  Weight: 64.9 kg

DRUGS (12)
  1. GELNIQUE [Concomitant]
     Active Substance: OXYBUTYNIN
  2. VITAMIN D [Concomitant]
     Active Substance: VITAMIN D NOS
  3. JANUMET [Concomitant]
     Active Substance: METFORMIN HYDROCHLORIDE\SITAGLIPTIN PHOSPHATE
  4. SYNTHROID [Concomitant]
     Active Substance: LEVOTHYROXINE SODIUM
  5. DALFAMPRIDINE. [Suspect]
     Active Substance: DALFAMPRIDINE
     Indication: GAIT DISTURBANCE
  6. VICTOZA [Concomitant]
     Active Substance: LIRAGLUTIDE
  7. LOSARTAN. [Concomitant]
     Active Substance: LOSARTAN
  8. PAROXETINE. [Concomitant]
     Active Substance: PAROXETINE
  9. ROSUVASTATIN. [Concomitant]
     Active Substance: ROSUVASTATIN
  10. DALFAMPRIDINE. [Suspect]
     Active Substance: DALFAMPRIDINE
     Indication: MULTIPLE SCLEROSIS
     Dosage: 10MG BID
     Dates: start: 20191022
  11. COPAXONE [Concomitant]
     Active Substance: GLATIRAMER ACETATE
  12. OMEPRAZOLE. [Concomitant]
     Active Substance: OMEPRAZOLE

REACTIONS (7)
  - Balance disorder [Not Recovered/Not Resolved]
  - Ankle fracture [Unknown]
  - Paraesthesia [Not Recovered/Not Resolved]
  - Open fracture [Not Recovered/Not Resolved]
  - Drug ineffective [Not Recovered/Not Resolved]
  - Meniscus injury [Not Recovered/Not Resolved]
  - Fall [Unknown]

NARRATIVE: CASE EVENT DATE: 2019
